FAERS Safety Report 10566052 (Version 3)
Quarter: 2014Q4

REPORT INFORMATION
  Report Type: Report from Study
  Country: US (occurrence: US)
  Receive Date: 20141105
  Receipt Date: 20141231
  Transmission Date: 20150529
  Serious: Yes (Hospitalization, Other)
  Sender: FDA-Public Use
  Company Number: US-GLAXOSMITHKLINE-US2014GSK013678

PATIENT
  Age: 42 Year
  Sex: Male

DRUGS (7)
  1. PAZOPANIB TABLET [Suspect]
     Active Substance: PAZOPANIB
     Indication: RENAL CELL CARCINOMA
     Dosage: 800 MG, QD
     Route: 048
     Dates: start: 20140507
  2. PAZOPANIB TABLET [Suspect]
     Active Substance: PAZOPANIB
     Dosage: 600 MG, QD
     Route: 048
     Dates: end: 20140827
  3. SEROQUEL [Concomitant]
     Active Substance: QUETIAPINE FUMARATE
     Indication: BIPOLAR DISORDER
     Dosage: 300 MG, QD
  4. ALBUTEROL INHALATIONAL POWDER [Concomitant]
     Active Substance: ALBUTEROL
     Indication: ASTHMA
     Dosage: UNK UNK, PRN
     Route: 055
  5. ZOFRAN [Concomitant]
     Active Substance: ONDANSETRON HYDROCHLORIDE
     Indication: NAUSEA
     Dosage: 8 MG, PRN
     Route: 048
  6. CALCIUM AND VITAMIN D [Concomitant]
     Active Substance: CALCIUM\VITAMIN D
     Dosage: UNK
  7. SINGULAIR [Concomitant]
     Active Substance: MONTELUKAST SODIUM
     Indication: ASTHMA
     Dosage: 10 MG, QD

REACTIONS (1)
  - Pancreatitis [Recovered/Resolved]

NARRATIVE: CASE EVENT DATE: 20140630
